FAERS Safety Report 4349530-1 (Version None)
Quarter: 2004Q2

REPORT INFORMATION
  Report Type: 
  Country: None (occurrence: None)
  Receive Date: 20040428
  Receipt Date: 20040219
  Transmission Date: 20050107
  Serious: Yes (Death, Hospitalization)
  Sender: FDA-Public Use
  Company Number: NZ-MERCK-0402NZL00023

PATIENT
  Age: 73 Year
  Sex: Female

DRUGS (12)
  1. AMITRIPTYLINE HYDROCHLORIDE [Concomitant]
     Route: 065
  2. ASPIRIN [Concomitant]
     Route: 065
  3. CILAZAPRIL [Concomitant]
     Route: 065
  4. DILTIAZEM HYDROCHLORIDE [Suspect]
     Route: 048
     Dates: end: 20030601
  5. FUROSEMIDE [Concomitant]
     Route: 065
  6. INSULIN [Concomitant]
     Route: 065
  7. ISOSORBIDE MONONITRATE [Concomitant]
     Route: 065
  8. METFORMIN [Concomitant]
     Route: 065
  9. METOPROLOL [Concomitant]
     Route: 065
  10. OMEPRAZOLE [Concomitant]
     Route: 065
  11. ZOCOR [Suspect]
     Indication: ACUTE MYOCARDIAL INFARCTION
     Route: 048
     Dates: start: 20030501, end: 20030601
  12. ZOCOR [Suspect]
     Route: 048
     Dates: end: 20030501

REACTIONS (5)
  - ARTHRALGIA [None]
  - DRUG INTERACTION [None]
  - FALL [None]
  - RENAL FAILURE [None]
  - RHABDOMYOLYSIS [None]
